FAERS Safety Report 17202824 (Version 3)
Quarter: 2020Q1

REPORT INFORMATION
  Report Type: Spontaneous
  Country: US (occurrence: US)
  Receive Date: 20191226
  Receipt Date: 20200106
  Transmission Date: 20200409
  Serious: No
  Sender: FDA-Public Use
  Company Number: US-PFIZER INC-2019550554

PATIENT
  Sex: Female

DRUGS (3)
  1. TRUSOPT [Suspect]
     Active Substance: DORZOLAMIDE HYDROCHLORIDE
     Indication: OCULAR DISCOMFORT
     Dosage: UNK
  2. PHOSPHOLINE IODIDE [Suspect]
     Active Substance: ECHOTHIOPHATE IODIDE
     Indication: OCULAR DISCOMFORT
     Dosage: UNK
     Dates: start: 20141205
  3. PILOCARPINE. [Suspect]
     Active Substance: PILOCARPINE
     Indication: OCULAR DISCOMFORT
     Dosage: 2% 4 TIMES A DAY
     Dates: start: 2012

REACTIONS (3)
  - Visual impairment [Unknown]
  - Abnormal dreams [Unknown]
  - Intentional product use issue [Unknown]
